FAERS Safety Report 8258844-4 (Version None)
Quarter: 2012Q2

REPORT INFORMATION
  Report Type: 
  Country: None (occurrence: None)
  Receive Date: 20120404
  Receipt Date: 20120326
  Transmission Date: 20120825
  Serious: Yes (Hospitalization)
  Sender: FDA-Public Use
  Company Number: FR-ASTRAZENECA-2012SE21407

PATIENT
  Age: 30 Year
  Sex: Female

DRUGS (26)
  1. MEROPENEM [Suspect]
     Route: 042
     Dates: start: 20110207, end: 20110213
  2. PROGRAF [Suspect]
     Route: 048
     Dates: start: 20110214
  3. KAYEXALATE [Concomitant]
  4. KEPPRA [Concomitant]
  5. LEVEMIR [Concomitant]
  6. MIDAZOLAM HCL [Concomitant]
     Dates: start: 20110204, end: 20110208
  7. PIPERACILLIN AND TAZOBACTAM [Concomitant]
     Dates: start: 20110204, end: 20110206
  8. PROGRAF [Suspect]
     Route: 048
     Dates: start: 20110205, end: 20110206
  9. CALCIDIA [Concomitant]
  10. HEMISUCCINATE D'HYDROCORTISONE [Concomitant]
     Dates: start: 20110204, end: 20110214
  11. EUPRESSYL [Concomitant]
  12. CREON [Concomitant]
  13. NOVORAPID [Concomitant]
  14. SUFENTANIL CITRATE [Concomitant]
     Dates: start: 20110204, end: 20110208
  15. HUMALOG [Concomitant]
     Dates: start: 20110204
  16. MYCOPHENOLATE MOFETIL (CELLCEPT) [Concomitant]
     Dates: start: 20110205
  17. VALGANCICLOVIR [Concomitant]
     Dates: start: 20110205
  18. PAROXETINE HYDROCHLORIDE [Concomitant]
  19. LASIX [Concomitant]
  20. LOVENOX [Concomitant]
     Dates: start: 20110205
  21. PREDNISONE TAB [Concomitant]
  22. RAMIPRIL [Concomitant]
  23. TERCIAN [Concomitant]
  24. ATENOLOL [Concomitant]
  25. NEXIUM [Concomitant]
     Route: 048
     Dates: start: 20110205, end: 20110214
  26. EXFORGE [Concomitant]

REACTIONS (1)
  - CHOLESTASIS [None]
